FAERS Safety Report 21920424 (Version 1)
Quarter: 2023Q1

REPORT INFORMATION
  Report Type: Spontaneous
  Country: IT (occurrence: IT)
  Receive Date: 20230127
  Receipt Date: 20230127
  Transmission Date: 20230418
  Serious: Yes (Life-Threatening, Hospitalization, Other)
  Sender: FDA-Public Use
  Company Number: IT-SHIRE-IT201945409

PATIENT
  Age: 63 Year
  Sex: Male

DRUGS (6)
  1. MESALAMINE [Suspect]
     Active Substance: MESALAMINE
     Indication: Colitis
     Dosage: 800 MILLIGRAM, TID
     Route: 065
  2. MESALAMINE [Suspect]
     Active Substance: MESALAMINE
     Indication: Evidence based treatment
     Dosage: 800 MILLIGRAM, Q8HR
     Route: 065
  3. SULFASALAZINE [Suspect]
     Active Substance: SULFASALAZINE
     Indication: Drug reaction with eosinophilia and systemic symptoms
     Dosage: UNK
     Route: 065
  4. SULFASALAZINE [Suspect]
     Active Substance: SULFASALAZINE
     Indication: Rheumatoid arthritis
  5. ACETAMINOPHEN [Concomitant]
     Active Substance: ACETAMINOPHEN
     Indication: Product used for unknown indication
     Dosage: UNK
  6. METHYLPREDNISOLONE [Concomitant]
     Active Substance: METHYLPREDNISOLONE
     Indication: Colitis
     Dosage: UNK

REACTIONS (15)
  - Drug reaction with eosinophilia and systemic symptoms [Recovered/Resolved]
  - Helicobacter gastritis [Recovered/Resolved]
  - Acute kidney injury [Recovered/Resolved]
  - Infection reactivation [Recovered/Resolved]
  - Varicella zoster virus infection [Recovered/Resolved]
  - Hepatic steatosis [Recovered/Resolved]
  - Leukocyturia [Recovered/Resolved]
  - Proteinuria [Recovered/Resolved]
  - Hypertransaminasaemia [Recovered/Resolved]
  - Eosinophilia [Recovered/Resolved]
  - Serum ferritin increased [Recovered/Resolved]
  - Colitis ulcerative [Recovered/Resolved]
  - Cholestasis [Recovered/Resolved]
  - Thrombocytopenia [Recovered/Resolved]
  - Liver disorder [Recovered/Resolved]
